FAERS Safety Report 5405357-0 (Version None)
Quarter: 2007Q3

REPORT INFORMATION
  Report Type: 
  Country: None (occurrence: None)
  Receive Date: 20070803
  Receipt Date: 20070104
  Transmission Date: 20080115
  Serious: Yes (Hospitalization)
  Sender: FDA-Public Use
  Company Number: AU-SOLVAY-00207033476

PATIENT
  Age: 17771 Day
  Sex: Female

DRUGS (5)
  1. AMARYL [Concomitant]
     Indication: ILL-DEFINED DISORDER
     Dosage: DAILY DOSE:  UNKNOWN
     Route: 065
  2. PERINDOPRIL ERBUMINE [Suspect]
     Indication: ILL-DEFINED DISORDER
     Dosage: DAILY DOSE:  UNKNOWN
     Route: 048
  3. CLOZARIL [Suspect]
     Indication: SCHIZOPHRENIA
     Dosage: DAILY DOSE: 250 MILLIGRAM(S)
     Route: 048
     Dates: start: 20060705, end: 20060801
  4. DIABEX [Concomitant]
     Indication: ILL-DEFINED DISORDER
     Dosage: DAILY DOSE:  UNKNOWN
     Route: 065
  5. METOPROLOL SUCCINATE [Concomitant]
     Indication: ILL-DEFINED DISORDER
     Dosage: DAILY DOSE:  UNKNOWN
     Route: 065

REACTIONS (5)
  - ARRHYTHMIA [None]
  - ATRIAL FLUTTER [None]
  - CARDIOMEGALY [None]
  - EOSINOPHILIA [None]
  - TROPONIN INCREASED [None]
